FAERS Safety Report 20996982 (Version 1)
Quarter: 2022Q2

REPORT INFORMATION
  Report Type: Spontaneous
  Country: US (occurrence: US)
  Receive Date: 20220623
  Receipt Date: 20220623
  Transmission Date: 20220721
  Serious: No
  Sender: FDA-Public Use
  Company Number: US-ALNYLAM PHARMACEUTICALS, INC.-ALN-2022-002044

PATIENT

DRUGS (2)
  1. GIVLAARI [Suspect]
     Active Substance: GIVOSIRAN SODIUM
     Indication: Product used for unknown indication
     Dosage: UNK
     Route: 065
  2. PANHEMATIN [Concomitant]
     Active Substance: HEMIN
     Indication: Product used for unknown indication

REACTIONS (3)
  - Somnolence [Unknown]
  - Nausea [Unknown]
  - Ill-defined disorder [Unknown]
